FAERS Safety Report 5782976-3 (Version None)
Quarter: 2008Q2

REPORT INFORMATION
  Report Type: 
  Country: None (occurrence: None)
  Receive Date: 20080624
  Receipt Date: 20080619
  Transmission Date: 20081010
  Serious: Yes (Other)
  Sender: FDA-Public Use
  Company Number: JP-AVENTIS-200811796JP

PATIENT

DRUGS (2)
  1. RILUTEK [Suspect]
     Indication: AMYOTROPHIC LATERAL SCLEROSIS
  2. UNKNOWN DRUG [Concomitant]

REACTIONS (1)
  - PULMONARY EMBOLISM [None]
